FAERS Safety Report 16990511 (Version 1)
Quarter: 2019Q4

REPORT INFORMATION
  Report Type: Spontaneous
  Country: GB (occurrence: GB)
  Receive Date: 20191104
  Receipt Date: 20191104
  Transmission Date: 20200122
  Serious: Yes (Other)
  Sender: FDA-Public Use
  Company Number: GB-MYLANLABS-2019M1104168

PATIENT
  Age: 75 Year
  Sex: Female
  Weight: 78.92 kg

DRUGS (1)
  1. DOXYCYCLINE. [Suspect]
     Active Substance: DOXYCYCLINE
     Indication: UVEITIS
     Dosage: 50 MILLIGRAM
     Route: 048
     Dates: start: 20180226, end: 20180302

REACTIONS (4)
  - Lip swelling [Unknown]
  - Pruritus [Recovering/Resolving]
  - Salivary gland pain [Recovering/Resolving]
  - Headache [Recovering/Resolving]

NARRATIVE: CASE EVENT DATE: 20180302
